FAERS Safety Report 9671684 (Version 1)
Quarter: 2013Q4

REPORT INFORMATION
  Report Type: Spontaneous
  Country: US (occurrence: US)
  Receive Date: 20131106
  Receipt Date: 20131106
  Transmission Date: 20140711
  Serious: Yes (Hospitalization)
  Sender: FDA-Public Use
  Company Number: PHHY2013US122576

PATIENT
  Age: 41 Year
  Sex: Female

DRUGS (1)
  1. METAXALONE [Suspect]
     Dosage: 16 G, UNK

REACTIONS (9)
  - Tachycardia [Recovered/Resolved]
  - Clonus [Recovered/Resolved]
  - Mydriasis [Recovered/Resolved]
  - Muscle rigidity [Recovered/Resolved]
  - Mental status changes [Recovered/Resolved]
  - Hypotension [Recovered/Resolved]
  - Hyperhidrosis [Recovered/Resolved]
  - Blood creatine phosphokinase increased [Recovered/Resolved]
  - Overdose [Unknown]
